FAERS Safety Report 8489522-4 (Version None)
Quarter: 2012Q3

REPORT INFORMATION
  Report Type: 
  Country: None (occurrence: None)
  Receive Date: 20120705
  Receipt Date: 20120626
  Transmission Date: 20120928
  Serious: Yes (Hospitalization)
  Sender: FDA-Public Use
  Company Number: US-JNJFOC-20120510263

PATIENT
  Sex: Female
  Weight: 92.99 kg

DRUGS (12)
  1. CADUET [Concomitant]
     Indication: BLOOD CHOLESTEROL INCREASED
     Route: 048
     Dates: start: 20070101
  2. CENESTIN [Concomitant]
     Indication: HORMONE THERAPY
     Route: 048
     Dates: start: 20060101
  3. CYMBALTA [Concomitant]
     Indication: NEUROPATHY PERIPHERAL
     Route: 048
     Dates: start: 20090101
  4. TOPROL-XL [Concomitant]
     Indication: BLOOD PRESSURE
     Route: 065
  5. SIMPONI [Suspect]
     Indication: PSORIATIC ARTHROPATHY
     Route: 058
     Dates: start: 20111101, end: 20111201
  6. LYRICA [Concomitant]
     Indication: NEUROPATHY PERIPHERAL
     Route: 048
     Dates: start: 20070101
  7. AMBIEN [Concomitant]
     Indication: SLEEP DISORDER
     Route: 066
  8. SIMPONI [Suspect]
     Route: 058
     Dates: start: 20120401
  9. SIMPONI [Suspect]
     Route: 058
     Dates: start: 20120215
  10. CADUET [Concomitant]
     Indication: HYPERTENSION
     Route: 048
     Dates: start: 20070101
  11. NEXIUM [Concomitant]
     Indication: GASTROOESOPHAGEAL REFLUX DISEASE
     Route: 048
     Dates: start: 20090101
  12. METHOTREXATE [Concomitant]
     Indication: ARTHRITIS
     Route: 048
     Dates: start: 20100801

REACTIONS (3)
  - DRUG DOSE OMISSION [None]
  - DEVICE MALFUNCTION [None]
  - LOCALISED INFECTION [None]
